FAERS Safety Report 12933579 (Version 11)
Quarter: 2018Q3

REPORT INFORMATION
  Report Type: Spontaneous
  Country: US (occurrence: US)
  Receive Date: 20161111
  Receipt Date: 20180803
  Transmission Date: 20181010
  Serious: Yes (Death, Hospitalization)
  Sender: FDA-Public Use
  Company Number: US-ACTELION-A-US2016-144366

PATIENT
  Age: 61 Year
  Sex: Female
  Weight: 118.82 kg

DRUGS (15)
  1. SINGULAIR [Concomitant]
     Active Substance: MONTELUKAST SODIUM
     Dosage: 10 MG, QD
     Dates: start: 2009
  2. TRAMADOL. [Concomitant]
     Active Substance: TRAMADOL
     Dosage: 50 MG, Q6 HRS PRN
     Dates: start: 20170202
  3. REQUIP [Concomitant]
     Active Substance: ROPINIROLE HYDROCHLORIDE
  4. FLUTICASONE. [Concomitant]
     Active Substance: FLUTICASONE
  5. SYNTHROID [Concomitant]
     Active Substance: LEVOTHYROXINE SODIUM
  6. GLUCOPHAGE [Concomitant]
     Active Substance: METFORMIN HYDROCHLORIDE
  7. REVATIO [Suspect]
     Active Substance: SILDENAFIL CITRATE
     Dosage: 20 MG, TID
     Route: 065
     Dates: end: 20150325
  8. TYLENOL ARTHRITIS PAIN [Concomitant]
     Active Substance: ACETAMINOPHEN
     Dosage: 650 MG, 6X^S/DAILY
  9. ASPIRIN. [Concomitant]
     Active Substance: ASPIRIN
     Dosage: 81 MG, UNK
  10. OPSUMIT [Suspect]
     Active Substance: MACITENTAN
     Indication: PULMONARY ARTERIAL HYPERTENSION
     Dosage: 10 MG, QD
     Route: 048
     Dates: start: 20160926
  11. LASIX [Concomitant]
     Active Substance: FUROSEMIDE
     Dosage: 40 MG, BID
     Route: 048
  12. REVATIO [Suspect]
     Active Substance: SILDENAFIL CITRATE
     Indication: PULMONARY HYPERTENSION
     Dosage: 10 MG, TID
     Route: 065
     Dates: start: 20161105
  13. ALBUTEROL. [Concomitant]
     Active Substance: ALBUTEROL
  14. ALLOPURINOL. [Concomitant]
     Active Substance: ALLOPURINOL
  15. PLAQUENIL [Concomitant]
     Active Substance: HYDROXYCHLOROQUINE SULFATE

REACTIONS (28)
  - Pulmonary oedema [Fatal]
  - Oropharyngeal pain [Unknown]
  - Nasal congestion [Unknown]
  - Tooth disorder [Unknown]
  - Sneezing [Recovering/Resolving]
  - Anaemia [Unknown]
  - Cardiac failure congestive [Unknown]
  - Pulseless electrical activity [Fatal]
  - Gastrooesophageal reflux disease [Unknown]
  - Paraesthesia [Unknown]
  - Asthma [Unknown]
  - Dyspnoea [Unknown]
  - Fluid retention [Unknown]
  - Fatigue [Unknown]
  - Upper-airway cough syndrome [Unknown]
  - Pleural effusion [Unknown]
  - Tooth fracture [Unknown]
  - Gait disturbance [Unknown]
  - Systemic lupus erythematosus [Unknown]
  - Dyspepsia [Unknown]
  - Cough [Recovering/Resolving]
  - Dizziness [Unknown]
  - Pulmonary hypertension [Unknown]
  - Nasal inflammation [Unknown]
  - Loss of personal independence in daily activities [Unknown]
  - Hot flush [Unknown]
  - Dyspnoea exertional [Not Recovered/Not Resolved]
  - Chest pain [Unknown]

NARRATIVE: CASE EVENT DATE: 20161215
